FAERS Safety Report 19856761 (Version 2)
Quarter: 2021Q4

REPORT INFORMATION
  Report Type: Report from Study
  Country: CN (occurrence: CN)
  Receive Date: 20210920
  Receipt Date: 20211004
  Transmission Date: 20220303
  Serious: Yes (Hospitalization)
  Sender: FDA-Public Use
  Company Number: CN-KARYOPHARM-2021KPT001176

PATIENT
  Age: 58 Year
  Sex: Female

DRUGS (19)
  1. SELINEXOR [Suspect]
     Active Substance: SELINEXOR
     Indication: Peripheral T-cell lymphoma unspecified
     Dosage: 60 MG, SINGLE
     Route: 048
     Dates: start: 20210617, end: 20210617
  2. SELINEXOR [Suspect]
     Active Substance: SELINEXOR
     Indication: Angiocentric lymphoma
     Dosage: 40 MG, SINGLE
     Route: 048
     Dates: start: 20210624, end: 20210624
  3. SELINEXOR [Suspect]
     Active Substance: SELINEXOR
     Dosage: 40 MG, SINGLE
     Route: 048
     Dates: start: 20210708, end: 20210708
  4. SELINEXOR [Suspect]
     Active Substance: SELINEXOR
     Dosage: 40 MG, SINGLE
     Route: 048
     Dates: start: 20210715, end: 20210715
  5. SELINEXOR [Suspect]
     Active Substance: SELINEXOR
     Dosage: 40 MG, SINGLE
     Route: 048
     Dates: start: 20210730, end: 20210730
  6. SELINEXOR [Suspect]
     Active Substance: SELINEXOR
     Dosage: 40 MG, SINGLE
     Route: 048
     Dates: start: 20210806, end: 20210806
  7. SELINEXOR [Suspect]
     Active Substance: SELINEXOR
     Dosage: 20 MG, SINGLE
     Route: 048
     Dates: start: 20210819, end: 20210819
  8. GEMCITABINE [Suspect]
     Active Substance: GEMCITABINE
     Indication: Peripheral T-cell lymphoma unspecified
     Dosage: 1.32 G, SINGLE
     Route: 042
     Dates: start: 20210617, end: 20210617
  9. GEMCITABINE [Suspect]
     Active Substance: GEMCITABINE
     Indication: Angiocentric lymphoma
     Dosage: 1.3 G, SINGLE
     Route: 042
     Dates: start: 20210624, end: 20210624
  10. GEMCITABINE [Suspect]
     Active Substance: GEMCITABINE
     Dosage: 1.29 G, SINGLE
     Route: 042
     Dates: start: 20210708, end: 20210708
  11. GEMCITABINE [Suspect]
     Active Substance: GEMCITABINE
     Dosage: 1.29 G, SINGLE
     Route: 042
     Dates: start: 20210715, end: 20210715
  12. GEMCITABINE [Suspect]
     Active Substance: GEMCITABINE
     Dosage: 1.3 G, SINGLE
     Route: 042
     Dates: start: 20210730, end: 20210730
  13. GEMCITABINE [Suspect]
     Active Substance: GEMCITABINE
     Dosage: 1.2 G, SINGLE
     Route: 042
     Dates: start: 20210806, end: 20210806
  14. GEMCITABINE [Suspect]
     Active Substance: GEMCITABINE
     Dosage: 1.3 G, SINGLE
     Route: 042
     Dates: start: 20210819, end: 20210819
  15. GEMCITABINE [Suspect]
     Active Substance: GEMCITABINE
     Dosage: 0.67 G, SINGLE
     Route: 042
     Dates: start: 20210826, end: 20210826
  16. OXALIPLATIN [Suspect]
     Active Substance: OXALIPLATIN
     Indication: Peripheral T-cell lymphoma unspecified
     Dosage: 171.6 MG, SINGLE
     Route: 042
     Dates: start: 20210617, end: 20210617
  17. OXALIPLATIN [Suspect]
     Active Substance: OXALIPLATIN
     Indication: Angiocentric lymphoma
     Dosage: 167.7 MG, SINGLE
     Route: 042
     Dates: start: 20210708, end: 20210708
  18. OXALIPLATIN [Suspect]
     Active Substance: OXALIPLATIN
     Dosage: 160 MG, SINGLE
     Route: 042
     Dates: start: 20210730, end: 20210730
  19. OXALIPLATIN [Suspect]
     Active Substance: OXALIPLATIN
     Dosage: 160 MG, SINGLE
     Route: 042
     Dates: start: 20210819, end: 20210819

REACTIONS (1)
  - Platelet count decreased [Recovered/Resolved]

NARRATIVE: CASE EVENT DATE: 20210901
